FAERS Safety Report 18558131 (Version 1)
Quarter: 2020Q4

REPORT INFORMATION
  Report Type: Report from Study
  Country: IT (occurrence: IT)
  Receive Date: 20201130
  Receipt Date: 20201130
  Transmission Date: 20210114
  Serious: Yes (Hospitalization, Other)
  Sender: FDA-Public Use
  Company Number: IT-BRISTOL-MYERS SQUIBB COMPANY-BMS-2020-098099

PATIENT
  Age: 73 Year
  Sex: Female

DRUGS (1)
  1. WARFARIN SODIUM. [Suspect]
     Active Substance: WARFARIN SODIUM
     Indication: VENOUS THROMBOSIS LIMB
     Dosage: 1 DOSAGE FORM, 1 DAY
     Route: 048
     Dates: start: 20130101, end: 20200928

REACTIONS (7)
  - Haematemesis [Recovering/Resolving]
  - Gastric varices haemorrhage [Recovering/Resolving]
  - International normalised ratio increased [Recovering/Resolving]
  - Anaemia [Recovering/Resolving]
  - Oesophageal varices haemorrhage [Recovering/Resolving]
  - Melaena [Recovering/Resolving]
  - Loss of consciousness [Recovering/Resolving]

NARRATIVE: CASE EVENT DATE: 20200928
